FAERS Safety Report 21303590 (Version 3)
Quarter: 2023Q1

REPORT INFORMATION
  Report Type: Spontaneous
  Country: IN (occurrence: IN)
  Receive Date: 20220907
  Receipt Date: 20230323
  Transmission Date: 20230417
  Serious: Yes (Other)
  Sender: FDA-Public Use
  Company Number: IN-PFIZER INC-2020102354

PATIENT
  Age: 41 Year
  Sex: Female

DRUGS (4)
  1. PALBOCICLIB [Suspect]
     Active Substance: PALBOCICLIB
     Indication: Breast cancer metastatic
     Dosage: 125 MG CYCLIC (ONCE A DAY D1-D21 ON AND ONE WEEK OFF)
     Route: 048
     Dates: start: 20190427
  2. LETROZOLE [Concomitant]
     Active Substance: LETROZOLE
     Indication: Breast cancer metastatic
     Dosage: 2.5 MG ONCE DAILY (D1-D28)
  3. SHELCAL [CALCIUM CARBONATE;COLECALCIFEROL] [Concomitant]
     Dosage: 1 TAB, 1X/DAY
  4. ULTRACET [Concomitant]
     Active Substance: ACETAMINOPHEN\TRAMADOL HYDROCHLORIDE
     Dosage: 1 DF

REACTIONS (3)
  - Therapeutic ovarian suppression [Unknown]
  - Tooth extraction [Unknown]
  - Wound [Unknown]
